FAERS Safety Report 18471127 (Version 1)
Quarter: 2020Q4

REPORT INFORMATION
  Report Type: Other
  Country: CA (occurrence: CA)
  Receive Date: 20201106
  Receipt Date: 20201106
  Transmission Date: 20210114
  Serious: Yes (Death, Other)
  Sender: FDA-Public Use
  Company Number: CA-APOTEX-2020AP020794

PATIENT
  Age: 25 Year
  Sex: Male
  Weight: 85 kg

DRUGS (3)
  1. CARBAMAZEPINE. [Concomitant]
     Active Substance: CARBAMAZEPINE
     Indication: PRODUCT USED FOR UNKNOWN INDICATION
     Dosage: UNK
     Route: 065
  2. DIVALPROEX [Suspect]
     Active Substance: DIVALPROEX SODIUM
     Dosage: 500 MILLIGRAM, QD
     Route: 048
  3. DIVALPROEX [Suspect]
     Active Substance: DIVALPROEX SODIUM
     Indication: SEIZURE
     Dosage: 750 MILLIGRAM, QD
     Route: 048

REACTIONS (21)
  - Cerebral hypoperfusion [Fatal]
  - Liver function test increased [Fatal]
  - Hypoglycaemia [Fatal]
  - Brain oedema [Fatal]
  - Hyperammonaemic encephalopathy [Fatal]
  - Aspiration [Fatal]
  - Clostridium difficile colitis [Fatal]
  - Disseminated intravascular coagulation [Fatal]
  - Generalised oedema [Fatal]
  - Hyponatraemia [Fatal]
  - Seizure [Fatal]
  - Acute kidney injury [Fatal]
  - Depressed level of consciousness [Fatal]
  - Resuscitation [Fatal]
  - Pancreatitis [Fatal]
  - Acute respiratory distress syndrome [Fatal]
  - Ascites [Fatal]
  - Brain herniation [Fatal]
  - Respiratory tract infection [Fatal]
  - Haemodialysis [Fatal]
  - Sepsis [Fatal]
